FAERS Safety Report 6791067-4 (Version None)
Quarter: 2010Q2

REPORT INFORMATION
  Report Type: 
  Country: None (occurrence: None)
  Receive Date: 20100624
  Receipt Date: 20100615
  Transmission Date: 20101027
  Serious: Yes (Other)
  Sender: FDA-Public Use
  Company Number: US-BAXTER-2010BH015152

PATIENT
  Age: 90 Year
  Sex: Male

DRUGS (4)
  1. DIANEAL [Suspect]
     Indication: PERITONEAL DIALYSIS
     Route: 033
     Dates: end: 20100101
  2. DIANEAL [Suspect]
     Indication: PERITONEAL DIALYSIS
     Route: 033
  3. PHOSPHATE BINDER [Concomitant]
     Indication: RENAL FAILURE CHRONIC
     Route: 065
  4. VITAMINS [Concomitant]
     Indication: RENAL FAILURE CHRONIC
     Route: 065

REACTIONS (1)
  - CEREBROVASCULAR ACCIDENT [None]
